FAERS Safety Report 6519739-7 (Version None)
Quarter: 2009Q4

REPORT INFORMATION
  Report Type: 
  Country: None (occurrence: None)
  Receive Date: 20091228
  Receipt Date: 20091228
  Transmission Date: 20100525
  Serious: Yes (Other)
  Sender: FDA-Public Use
  Company Number: None

PATIENT
  Age: 62 Year
  Sex: Male
  Weight: 68.0396 kg

DRUGS (1)
  1. ROBITUSSIN [Suspect]

REACTIONS (4)
  - ABDOMINAL PAIN UPPER [None]
  - HALLUCINATION [None]
  - HEADACHE [None]
  - INSOMNIA [None]
